FAERS Safety Report 5805265-7 (Version None)
Quarter: 2008Q3

REPORT INFORMATION
  Report Type: 
  Country: None (occurrence: None)
  Receive Date: 20080703
  Receipt Date: 20080620
  Transmission Date: 20090109
  Serious: Yes (Death)
  Sender: FDA-Public Use
  Company Number: 2008001485

PATIENT
  Age: 68 Year
  Sex: Male

DRUGS (4)
  1. ERLOTINIB (ERLOTINIB) (TABLET) (ERLOTINIB) [Suspect]
     Indication: TONGUE NEOPLASM MALIGNANT STAGE UNSPECIFIED
     Dosage: (50 MG,QD), ORAL
     Route: 048
     Dates: start: 20080211
  2. BEVACIZUMAB [Suspect]
     Dosage: (610 MG,Q2W), INTRAVENOUS
     Route: 042
     Dates: start: 20080415
  3. CISPLATIN [Concomitant]
  4. DEXAMETHASONE TAB [Concomitant]

REACTIONS (2)
  - PLATELET COUNT DECREASED [None]
  - RED BLOOD CELL COUNT DECREASED [None]
